FAERS Safety Report 25937567 (Version 1)
Quarter: 2025Q4

REPORT INFORMATION
  Report Type: Spontaneous
  Country: US (occurrence: US)
  Receive Date: 20251018
  Receipt Date: 20251018
  Transmission Date: 20260117
  Serious: Yes (Other)
  Sender: AUROBINDO
  Company Number: US-AUROBINDO-AUR-APL-2025-052553

PATIENT

DRUGS (1)
  1. TESTOSTERONE CYPIONATE [Suspect]
     Active Substance: TESTOSTERONE CYPIONATE
     Indication: Product used for unknown indication
     Dosage: UNK
     Route: 065

REACTIONS (15)
  - Erectile dysfunction [Unknown]
  - Abdominal pain [Unknown]
  - Abdominal distension [Unknown]
  - Body fat disorder [Unknown]
  - Fatigue [Unknown]
  - Alopecia [Unknown]
  - Head discomfort [Unknown]
  - Hot flush [Unknown]
  - Renal pain [Unknown]
  - Lethargy [Unknown]
  - Hepatic pain [Unknown]
  - Nausea [Unknown]
  - Urine odour abnormal [Unknown]
  - Liquid product physical issue [Unknown]
  - Drug delivery system issue [Unknown]
